FAERS Safety Report 9429078 (Version 1)
Quarter: 2013Q3

REPORT INFORMATION
  Report Type: Spontaneous
  Country: US (occurrence: US)
  Receive Date: 20130730
  Receipt Date: 20130730
  Transmission Date: 20140515
  Serious: No
  Sender: FDA-Public Use
  Company Number: US-ABBOTT-12P-163-1011576-00

PATIENT
  Age: 57 Year
  Sex: Male

DRUGS (2)
  1. NIASPAN (COATED) [Suspect]
     Indication: PRODUCT USED FOR UNKNOWN INDICATION
  2. LOTREL [Concomitant]
     Indication: HYPERTENSION
     Dosage: 5/40

REACTIONS (2)
  - Hepatic enzyme increased [Unknown]
  - Alanine aminotransferase increased [Unknown]
